FAERS Safety Report 17136781 (Version 2)
Quarter: 2019Q4

REPORT INFORMATION
  Report Type: Spontaneous
  Country: PT (occurrence: PT)
  Receive Date: 20191210
  Receipt Date: 20191213
  Transmission Date: 20200122
  Serious: Yes (Death, Other)
  Sender: FDA-Public Use
  Company Number: PT-MYLANLABS-2019M1049181

PATIENT
  Age: 45 Year
  Sex: Female

DRUGS (14)
  1. PALBOCICLIB [Suspect]
     Active Substance: PALBOCICLIB
     Indication: BREAST CANCER METASTATIC
     Dosage: UNK
     Route: 048
  2. PALBOCICLIB [Suspect]
     Active Substance: PALBOCICLIB
     Indication: HORMONE THERAPY
     Dosage: 100 MG, CYCLIC (1X DAY DURING 21 DAYS)
     Route: 048
  3. PALBOCICLIB [Suspect]
     Active Substance: PALBOCICLIB
     Indication: HUMAN EPIDERMAL GROWTH FACTOR RECEPTOR NEGATIVE
     Dosage: UNK
     Route: 048
  4. DOCETAXEL. [Suspect]
     Active Substance: DOCETAXEL
     Indication: CHEMOTHERAPY
     Dosage: UNK
  5. PALBOCICLIB [Suspect]
     Active Substance: PALBOCICLIB
     Indication: CHEMOTHERAPY
     Dosage: UNK UNK, TOTAL (CYCLIC)
     Route: 048
  6. CARBOPLATIN. [Suspect]
     Active Substance: CARBOPLATIN
     Indication: INVASIVE DUCTAL BREAST CARCINOMA
  7. EVEROLIMUS. [Suspect]
     Active Substance: EVEROLIMUS
     Indication: METASTASES TO LIVER
     Dosage: UNK
  8. LETROZOLE. [Suspect]
     Active Substance: LETROZOLE
     Indication: HORMONE THERAPY
     Dosage: UNK
  9. PACLITAXEL. [Suspect]
     Active Substance: PACLITAXEL
     Indication: HUMAN EPIDERMAL GROWTH FACTOR RECEPTOR NEGATIVE
     Dosage: UNK
  10. FULVESTRANT. [Suspect]
     Active Substance: FULVESTRANT
     Indication: BREAST CANCER METASTATIC
     Dosage: UNK
     Route: 030
  11. FULVESTRANT. [Suspect]
     Active Substance: FULVESTRANT
     Dosage: UNK
     Route: 030
  12. CARBOPLATIN. [Suspect]
     Active Substance: CARBOPLATIN
     Indication: CHEMOTHERAPY
     Dosage: UNK
     Route: 065
  13. EXEMESTANE. [Suspect]
     Active Substance: EXEMESTANE
     Indication: METASTASES TO LIVER
     Dosage: UNK
  14. PALBOCICLIB [Suspect]
     Active Substance: PALBOCICLIB
     Indication: INVASIVE DUCTAL BREAST CARCINOMA
     Dosage: 100 MILLIGRAM, QD FOR 21 DAYS
     Route: 048

REACTIONS (13)
  - Neutropenia [Unknown]
  - Metastases to liver [Unknown]
  - Thrombocytopenia [Recovering/Resolving]
  - Drug intolerance [Unknown]
  - Cancer pain [Unknown]
  - Sepsis [Recovering/Resolving]
  - Haematotoxicity [Recovered/Resolved]
  - Invasive ductal breast carcinoma [Unknown]
  - Metastasis [Unknown]
  - Therapeutic response decreased [Unknown]
  - Malignant neoplasm progression [Unknown]
  - Off label use [Unknown]
  - Hepatic failure [Fatal]

NARRATIVE: CASE EVENT DATE: 201612
